FAERS Safety Report 10366085 (Version 1)
Quarter: 2014Q3

REPORT INFORMATION
  Report Type: Other
  Country: JP (occurrence: JP)
  Receive Date: 20140806
  Receipt Date: 20140806
  Transmission Date: 20150326
  Serious: Yes (Other)
  Sender: FDA-Public Use
  Company Number: JP-BRISTOL-MYERS SQUIBB COMPANY-21249370

PATIENT
  Age: 11 Year
  Sex: Male

DRUGS (15)
  1. CYCLOPHOSPHAMIDE. [Suspect]
     Active Substance: CYCLOPHOSPHAMIDE
     Indication: MEDULLOBLASTOMA
     Dosage: 1DF: 12G/M2
  2. METHOTREXATE [Suspect]
     Active Substance: METHOTREXATE
     Indication: MEDULLOBLASTOMA
     Dosage: 1DF: 216G/M2
  3. ETOPOSIDE. [Suspect]
     Active Substance: ETOPOSIDE
     Indication: MEDULLOBLASTOMA
     Dosage: 1DF: 2G/M2
  4. PIRARUBICIN [Suspect]
     Active Substance: PIRARUBICIN
     Indication: OSTEOSARCOMA
  5. IFOSFAMIDE. [Suspect]
     Active Substance: IFOSFAMIDE
     Indication: MEDULLOBLASTOMA
     Dosage: 1DF: 36G/M2
  6. DOXORUBICIN [Suspect]
     Active Substance: DOXORUBICIN
     Indication: OSTEOSARCOMA
  7. IFOSFAMIDE. [Suspect]
     Active Substance: IFOSFAMIDE
     Indication: OSTEOSARCOMA
     Dosage: 1DF: 36G/M2
  8. PIRARUBICIN [Suspect]
     Active Substance: PIRARUBICIN
     Indication: MEDULLOBLASTOMA
  9. THIOTEPA. [Suspect]
     Active Substance: THIOTEPA
     Indication: MEDULLOBLASTOMA
  10. METHOTREXATE [Suspect]
     Active Substance: METHOTREXATE
     Indication: OSTEOSARCOMA
     Dosage: 1DF: 216G/M2
  11. CISPLATIN. [Suspect]
     Active Substance: CISPLATIN
     Indication: MEDULLOBLASTOMA
     Dosage: TOTAL DOSE: 500MG/M2
  12. CISPLATIN. [Suspect]
     Active Substance: CISPLATIN
     Indication: OSTEOSARCOMA
     Dosage: TOTAL DOSE: 500MG/M2
  13. MELPHALAN [Suspect]
     Active Substance: MELPHALAN
     Indication: MEDULLOBLASTOMA
  14. VINCRISTINE [Suspect]
     Active Substance: VINCRISTINE
     Indication: MEDULLOBLASTOMA
  15. DOXORUBICIN [Suspect]
     Active Substance: DOXORUBICIN
     Indication: MEDULLOBLASTOMA

REACTIONS (1)
  - Myelodysplastic syndrome [Recovering/Resolving]
